FAERS Safety Report 7375090-7 (Version None)
Quarter: 2011Q1

REPORT INFORMATION
  Report Type: 
  Country: None (occurrence: None)
  Receive Date: 20110325
  Receipt Date: 20110316
  Transmission Date: 20110831
  Serious: Yes (Other)
  Sender: FDA-Public Use
  Company Number: CA-JNJFOC-20110102636

PATIENT
  Sex: Male

DRUGS (3)
  1. COVERSYL [Concomitant]
     Indication: HYPERTENSION
  2. STELARA [Suspect]
     Indication: PRODUCT USED FOR UNKNOWN INDICATION
     Route: 058
  3. STELARA [Suspect]
     Route: 058

REACTIONS (2)
  - MYALGIA [None]
  - MUSCULAR WEAKNESS [None]
